FAERS Safety Report 11070580 (Version 1)
Quarter: 2015Q2

REPORT INFORMATION
  Report Type: Report from Study
  Country: CL (occurrence: CL)
  Receive Date: 20150427
  Receipt Date: 20150427
  Transmission Date: 20150821
  Serious: Yes (Hospitalization, Other)
  Sender: FDA-Public Use
  Company Number: CL-BRISTOL-MYERS SQUIBB COMPANY-16722993

PATIENT
  Age: 47 Year
  Sex: Male

DRUGS (1)
  1. IPILIMUMAB [Suspect]
     Active Substance: IPILIMUMAB
     Indication: PROSTATE CANCER
     Dosage: LAST DOSE:21JUN12
     Route: 042
     Dates: start: 20120531, end: 20120621

REACTIONS (4)
  - Colitis [Recovered/Resolved]
  - Hepatotoxicity [Recovered/Resolved]
  - Nephritis [Recovered/Resolved]
  - Brain oedema [Not Recovered/Not Resolved]

NARRATIVE: CASE EVENT DATE: 20120626
